FAERS Safety Report 6670870-5 (Version None)
Quarter: 2010Q2

REPORT INFORMATION
  Report Type: 
  Country: None (occurrence: None)
  Receive Date: 20100407
  Receipt Date: 20100330
  Transmission Date: 20101027
  Serious: Yes (Other)
  Sender: FDA-Public Use
  Company Number: CN-JNJFOC-20100308812

PATIENT
  Age: 38 Year
  Sex: Male

DRUGS (2)
  1. SPORANOX [Suspect]
     Indication: ONYCHOMYCOSIS
     Route: 048
  2. EBASTINE [Concomitant]
     Indication: ECZEMA
     Route: 048

REACTIONS (2)
  - PLATELET COUNT DECREASED [None]
  - PROSTATIC SPECIFIC ANTIGEN INCREASED [None]
